FAERS Safety Report 12896856 (Version 1)
Quarter: 2016Q4

REPORT INFORMATION
  Report Type: Spontaneous
  Country: JP (occurrence: JP)
  Receive Date: 20161031
  Receipt Date: 20161031
  Transmission Date: 20170207
  Serious: Yes (Death, Hospitalization)
  Sender: FDA-Public Use
  Company Number: JP-FERRINGPH-2016FE05710

PATIENT

DRUGS (5)
  1. GONAX [Suspect]
     Active Substance: DEGARELIX
     Dosage: 240 MG, ONCE/SINGLE
     Route: 058
     Dates: start: 20141006
  2. GONAX [Suspect]
     Active Substance: DEGARELIX
     Dosage: 80 MG, MONTHLY
     Route: 058
  3. BAYASPIRIN [Concomitant]
     Active Substance: ASPIRIN
     Route: 048
  4. GONAX [Suspect]
     Active Substance: DEGARELIX
     Indication: PROSTATE CANCER
     Dosage: 80 MG, MONTHLY
     Route: 058
     Dates: start: 20151019
  5. CASODEX [Concomitant]
     Active Substance: BICALUTAMIDE
     Route: 048

REACTIONS (6)
  - Pyrexia [Unknown]
  - Abdominal mass [Unknown]
  - Injection site reaction [Unknown]
  - Small intestinal haemorrhage [Fatal]
  - Duodenal ulcer [Unknown]
  - Injection site mass [Unknown]

NARRATIVE: CASE EVENT DATE: 201410
